FAERS Safety Report 7649786-3 (Version None)
Quarter: 2011Q3

REPORT INFORMATION
  Report Type: 
  Country: None (occurrence: None)
  Receive Date: 20110802
  Receipt Date: 20110727
  Transmission Date: 20111222
  Serious: Yes (Life-Threatening, Hospitalization, Disabling, Other)
  Sender: FDA-Public Use
  Company Number: US-AMGEN-USASP2011029235

PATIENT
  Age: 59 Year
  Sex: Male

DRUGS (10)
  1. NPLATE [Suspect]
  2. DANAZOL [Concomitant]
  3. RITUXIMAB [Suspect]
  4. NPLATE [Suspect]
  5. NPLATE [Suspect]
  6. NPLATE [Suspect]
  7. NPLATE [Suspect]
  8. NPLATE [Suspect]
     Indication: IDIOPATHIC THROMBOCYTOPENIC PURPURA
     Dosage: 8 A?G/KG, QWK
     Dates: start: 20110125, end: 20110617
  9. NPLATE [Suspect]
  10. DANAZOL [Concomitant]

REACTIONS (16)
  - URINARY BLADDER HAEMORRHAGE [None]
  - INFLAMMATION [None]
  - BACTERIAL DISEASE CARRIER [None]
  - THERAPEUTIC RESPONSE DECREASED [None]
  - HAEMATURIA [None]
  - MYELOFIBROSIS [None]
  - THROMBOCYTOPENIA [None]
  - HAEMATOLOGICAL MALIGNANCY [None]
  - BONE MARROW RETICULIN FIBROSIS [None]
  - MOUTH HAEMORRHAGE [None]
  - GENERAL PHYSICAL HEALTH DETERIORATION [None]
  - HAEMATOMA [None]
  - HEPATOSPLENOMEGALY [None]
  - GINGIVAL BLEEDING [None]
  - FALL [None]
  - BACTERIAL TEST POSITIVE [None]
